FAERS Safety Report 8875515 (Version 1)
Quarter: 2012Q4

REPORT INFORMATION
  Report Type: Report from Study
  Country: US (occurrence: US)
  Receive Date: 20121030
  Receipt Date: 20121030
  Transmission Date: 20130627
  Serious: No
  Sender: FDA-Public Use
  Company Number: US-ABBOTT-12P-163-0961519-00

PATIENT
  Sex: Female
  Weight: 88.53 kg

DRUGS (4)
  1. LUPRON DEPOT 3.75 MG [Suspect]
     Indication: UTERINE LEIOMYOMA
     Dates: start: 20120627
  2. CLARITIN [Concomitant]
     Indication: SEASONAL ALLERGY
  3. VITAMIN B12 [Concomitant]
     Indication: ASTHENIA
  4. IRON [Concomitant]
     Indication: ANAEMIA

REACTIONS (2)
  - Hot flush [Not Recovered/Not Resolved]
  - Hot flush [Not Recovered/Not Resolved]
